FAERS Safety Report 7341746-5 (Version None)
Quarter: 2011Q1

REPORT INFORMATION
  Report Type: 
  Country: None (occurrence: None)
  Receive Date: 20110309
  Receipt Date: 20110301
  Transmission Date: 20110831
  Serious: Yes (Other)
  Sender: FDA-Public Use
  Company Number: US-PFIZER INC-2011029014

PATIENT
  Sex: Female

DRUGS (2)
  1. LYRICA [Suspect]
     Indication: FIBROMYALGIA
     Dosage: 150 UNK, 2X/DAY
     Dates: start: 20100805
  2. LYRICA [Suspect]
     Indication: ARTHRALGIA
     Dosage: 75 UNK, 2X/DAY

REACTIONS (1)
  - DRUG DEPENDENCE [None]
